FAERS Safety Report 8852016 (Version 1)
Quarter: 2012Q4

REPORT INFORMATION
  Report Type: Spontaneous
  Country: BE (occurrence: None)
  Receive Date: 20121017
  Receipt Date: 20121017
  Transmission Date: 20130627
  Serious: Yes (Other)
  Sender: FDA-Public Use
  Company Number: IMP_06023_2012

PATIENT
  Age: 15 Year
  Sex: Male
  Weight: 42 kg

DRUGS (8)
  1. OMEPRAZOLE (OMEPRAZOLE) [Suspect]
     Indication: ABDOMINAL PAIN UPPER
     Route: 048
  2. METHOTREXATE [Suspect]
     Indication: DRUG USE FOR UNKNOWN INDICATION
     Route: 042
  3. DEXAMETHASONE [Concomitant]
  4. CYCLOPHOSPHAMIDE [Concomitant]
  5. VINCRISTINE [Concomitant]
  6. DAUNORUBICINE [Concomitant]
  7. TRIPLE INTRATHECAL CHEMOTHERAPY [Concomitant]
  8. L-ASPARAGINASE [Concomitant]

REACTIONS (7)
  - Therapeutic response decreased [None]
  - Drug level increased [None]
  - Mucosal inflammation [None]
  - Toxicity to various agents [None]
  - Blood lactate dehydrogenase abnormal [None]
  - Inhibitory drug interaction [None]
  - Blood pH increased [None]
